FAERS Safety Report 6497047-0 (Version None)
Quarter: 2009Q4

REPORT INFORMATION
  Report Type: 
  Country: None (occurrence: None)
  Receive Date: 20091215
  Receipt Date: 20090205
  Transmission Date: 20100525
  Serious: No
  Sender: FDA-Public Use
  Company Number: A0767165A

PATIENT
  Age: 91 Year
  Sex: Male

DRUGS (5)
  1. AVODART [Suspect]
     Indication: BENIGN PROSTATIC HYPERPLASIA
     Dosage: .5MG PER DAY
     Route: 048
     Dates: start: 20081101
  2. DIGOXIN [Concomitant]
  3. FLOMAX [Concomitant]
  4. ARICEPT [Concomitant]
  5. VITAMIN [Concomitant]

REACTIONS (8)
  - DIZZINESS [None]
  - DRY MOUTH [None]
  - DRY SKIN [None]
  - FALL [None]
  - SPEECH DISORDER [None]
  - THIRST [None]
  - TONGUE DISORDER [None]
  - WEIGHT DECREASED [None]
